FAERS Safety Report 6490910-6 (Version None)
Quarter: 2009Q4

REPORT INFORMATION
  Report Type: 
  Country: None (occurrence: None)
  Receive Date: 20091211
  Receipt Date: 20091203
  Transmission Date: 20100525
  Serious: Yes (Other)
  Sender: FDA-Public Use
  Company Number: US-WATSON-2009-10340

PATIENT
  Sex: Female
  Weight: 58.957 kg

DRUGS (10)
  1. LORAZEPAM [Suspect]
     Indication: EPILEPSY
     Dosage: 2, 0.5 MG TABLETS AT BEDTIME/EVENING  FOR SEIZURE PROPHYLAXIS; 1 TABLET OR MORE PRN AT SEZIURE ONSET
     Route: 048
     Dates: start: 20091129
  2. LAMICTAL [Concomitant]
     Indication: EPILEPSY
     Dosage: 700 MG, DAILY (300 MG QAM, 400 MG QHS)
     Route: 048
     Dates: start: 20040101
  3. RUFINAMIDE [Concomitant]
     Indication: EPILEPSY
     Dosage: 600 MG, QHS
     Route: 048
     Dates: start: 20040101
  4. FRISIUM [Concomitant]
     Indication: EPILEPSY
     Dosage: 10 MG, QHS
     Route: 048
     Dates: start: 20070101
  5. OMEPRAZOLE [Concomitant]
     Indication: DRUG USE FOR UNKNOWN INDICATION
     Dosage: 20 MG, QAM/QPM
     Route: 048
  6. VALTREX [Concomitant]
     Indication: HERPES VIRUS INFECTION
     Dosage: 500 MG, QHS
     Route: 048
  7. VITAMIN B COMPLEX                  /00003501/ [Concomitant]
     Indication: SUPPLEMENTATION THERAPY
     Dosage: UNK
     Route: 065
  8. MULTIVITAMIN                       /00831701/ [Concomitant]
     Indication: SUPPLEMENTATION THERAPY
     Dosage: UNK
     Route: 065
  9. CALCIUM [Concomitant]
     Indication: SUPPLEMENTATION THERAPY
     Dosage: UNK
     Route: 065
  10. MAGNESIUM [Concomitant]
     Indication: SUPPLEMENTATION THERAPY
     Dosage: UNK
     Route: 065

REACTIONS (10)
  - COMPLEX PARTIAL SEIZURES [None]
  - DRUG INEFFECTIVE FOR UNAPPROVED INDICATION [None]
  - EPIGASTRIC DISCOMFORT [None]
  - EPILEPTIC AURA [None]
  - FATIGUE [None]
  - FEELING ABNORMAL [None]
  - HALLUCINATION, VISUAL [None]
  - HANGOVER [None]
  - INSOMNIA [None]
  - SOMNOLENCE [None]
